FAERS Safety Report 10774345 (Version 1)
Quarter: 2015Q1

REPORT INFORMATION
  Report Type: Spontaneous
  Country: US (occurrence: US)
  Receive Date: 20150209
  Receipt Date: 20150209
  Transmission Date: 20150721
  Serious: No
  Sender: FDA-Public Use
  Company Number: US-ACORDA-ACO_22673_2011

PATIENT
  Sex: Female

DRUGS (4)
  1. TYSABRI [Concomitant]
     Active Substance: NATALIZUMAB
     Indication: MULTIPLE SCLEROSIS
     Dosage: UNK
     Dates: end: 200912
  2. AMPYRA [Suspect]
     Active Substance: DALFAMPRIDINE
     Indication: GAIT DISTURBANCE
     Dosage: 10 MG, BID
     Route: 048
     Dates: start: 201006, end: 201008
  3. TYSABRI [Concomitant]
     Active Substance: NATALIZUMAB
     Dosage: 300 MG, Q 8 WEEKS
     Dates: start: 201008
  4. CONCERTA [Concomitant]
     Active Substance: METHYLPHENIDATE HYDROCHLORIDE
     Dosage: 27 MG, QD

REACTIONS (9)
  - Balance disorder [Recovered/Resolved]
  - Initial insomnia [Recovered/Resolved]
  - Multiple sclerosis relapse [Recovering/Resolving]
  - Coordination abnormal [Unknown]
  - Anxiety [Unknown]
  - Depression [Unknown]
  - Drug ineffective [Unknown]
  - Gait disturbance [Recovered/Resolved]
  - Insomnia [Recovered/Resolved]

NARRATIVE: CASE EVENT DATE: 2010
